FAERS Safety Report 7832610-3 (Version None)
Quarter: 2011Q4

REPORT INFORMATION
  Report Type: 
  Country: None (occurrence: None)
  Receive Date: 20111024
  Receipt Date: 20111014
  Transmission Date: 20120403
  Serious: No
  Sender: FDA-Public Use
  Company Number: US-BIOGENIDEC-2011BI009466

PATIENT
  Sex: Female

DRUGS (4)
  1. BACLOFEN [Concomitant]
     Indication: PRODUCT USED FOR UNKNOWN INDICATION
  2. TYSABRI [Suspect]
     Indication: MULTIPLE SCLEROSIS
     Route: 042
     Dates: start: 20110118, end: 20110805
  3. PERCOCET [Concomitant]
     Indication: PRODUCT USED FOR UNKNOWN INDICATION
  4. NAPROXEN [Concomitant]
     Indication: PRODUCT USED FOR UNKNOWN INDICATION

REACTIONS (30)
  - APHASIA [None]
  - SUPERFICIAL VEIN PROMINENCE [None]
  - FEELING ABNORMAL [None]
  - ERYTHEMA [None]
  - SCAR [None]
  - MULTIPLE SCLEROSIS [None]
  - BALANCE DISORDER [None]
  - MUSCLE TIGHTNESS [None]
  - DIZZINESS [None]
  - DRY SKIN [None]
  - MOBILITY DECREASED [None]
  - ARTHROPATHY [None]
  - MUSCULOSKELETAL STIFFNESS [None]
  - UPPER RESPIRATORY TRACT INFECTION [None]
  - WEIGHT DECREASED [None]
  - BACK PAIN [None]
  - PARAESTHESIA [None]
  - HEADACHE [None]
  - ORAL HERPES [None]
  - ARTHRALGIA [None]
  - DYSARTHRIA [None]
  - CONFUSIONAL STATE [None]
  - CENTRAL NERVOUS SYSTEM LESION [None]
  - FLUSHING [None]
  - HYPERSOMNIA [None]
  - CONTUSION [None]
  - RASH PAPULAR [None]
  - AFFECT LABILITY [None]
  - PAIN IN EXTREMITY [None]
  - FATIGUE [None]
